FAERS Safety Report 7167183-4 (Version None)
Quarter: 2010Q4

REPORT INFORMATION
  Report Type: 
  Country: None (occurrence: None)
  Receive Date: 20101216
  Receipt Date: 20101210
  Transmission Date: 20110411
  Serious: Yes (Life-Threatening, Other)
  Sender: FDA-Public Use
  Company Number: PHHY2010GB26669

PATIENT
  Sex: Female
  Weight: 63.5 kg

DRUGS (2)
  1. VOLTAREN [Suspect]
     Indication: OEDEMA PERIPHERAL
     Dosage: 2 X 25 MG
     Route: 048
     Dates: start: 20090218
  2. FLUOXETINE [Concomitant]
     Indication: DEPRESSION
     Dosage: 20 MG
     Route: 048
     Dates: start: 20080101, end: 20090218

REACTIONS (4)
  - MALAISE [None]
  - ROAD TRAFFIC ACCIDENT [None]
  - SOMNOLENCE [None]
  - SYNCOPE [None]
